FAERS Safety Report 4567440-1 (Version None)
Quarter: 2005Q1

REPORT INFORMATION
  Report Type: 
  Country: None (occurrence: None)
  Receive Date: 20050127
  Receipt Date: 20050113
  Transmission Date: 20050727
  Serious: Yes (Other)
  Sender: FDA-Public Use
  Company Number: 2005012285

PATIENT
  Age: 50 Year
  Sex: Male

DRUGS (2)
  1. VALDURE (VALDECOXIB) [Suspect]
     Indication: PAIN
     Dosage: (40 MG), ORAL
     Route: 048
     Dates: start: 20041201, end: 20050103
  2. KETOPROFEN [Suspect]
     Indication: JOINT INJURY
     Dosage: (200 MG)

REACTIONS (3)
  - BLOOD PRESSURE INCREASED [None]
  - FEELING ABNORMAL [None]
  - RENAL FAILURE [None]
